FAERS Safety Report 4403857-3 (Version None)
Quarter: 2004Q3

REPORT INFORMATION
  Report Type: 
  Country: None (occurrence: None)
  Receive Date: 20040719
  Receipt Date: 20040705
  Transmission Date: 20050211
  Serious: Yes (Hospitalization)
  Sender: FDA-Public Use
  Company Number: 032-0981-M0000006

PATIENT
  Age: 70 Year
  Sex: Male
  Weight: 64.5 kg

DRUGS (9)
  1. ATORVASTATIN CALCIUM [Suspect]
     Indication: CORONARY ARTERY DISEASE
     Dosage: SEE IMAGE
     Route: 048
     Dates: start: 19980828, end: 19981022
  2. ATORVASTATIN CALCIUM [Suspect]
     Indication: CORONARY ARTERY DISEASE
     Dosage: SEE IMAGE
     Route: 048
     Dates: start: 19981023
  3. FENOTEROL (FENOTEROL) [Concomitant]
  4. ACETYLSALICYLIC ACID SRT [Concomitant]
  5. LISINOPRIL [Concomitant]
  6. FUROSEMIDE [Concomitant]
  7. BECLOMETASONE DIPROPIONATE (BECLOMETASONE) [Concomitant]
  8. THEOPHYLLINE [Concomitant]
  9. MOLSIDOMINE (MOLSIDOMINE) [Concomitant]

REACTIONS (3)
  - CHRONIC OBSTRUCTIVE AIRWAYS DISEASE [None]
  - COUGH [None]
  - INFECTION [None]
